FAERS Safety Report 9647605 (Version 2)
Quarter: 2013Q4

REPORT INFORMATION
  Report Type: Spontaneous
  Country: TH (occurrence: TH)
  Receive Date: 20131028
  Receipt Date: 20131122
  Transmission Date: 20140711
  Serious: Yes (Hospitalization)
  Sender: FDA-Public Use
  Company Number: TH-MERCK-1310THA008870

PATIENT
  Age: 44 Year
  Sex: Male

DRUGS (2)
  1. PEGINTRON REDIPEN [Suspect]
     Indication: CHRONIC HEPATITIS C
     Dosage: REDIPEN, 100 MICROGRAM, QW
     Route: 058
     Dates: end: 20130930
  2. REBETOL [Suspect]
     Indication: CHRONIC HEPATITIS C
     Dosage: 1000MG/DAY
     Route: 048
     Dates: end: 20130930

REACTIONS (2)
  - Pulmonary hypertension [Recovered/Resolved]
  - Fatigue [Recovered/Resolved]
